FAERS Safety Report 23339549 (Version 1)
Quarter: 2023Q4

REPORT INFORMATION
  Report Type: Spontaneous
  Country: BR (occurrence: BR)
  Receive Date: 20231226
  Receipt Date: 20231226
  Transmission Date: 20240110
  Serious: Yes (Hospitalization)
  Sender: FDA-Public Use
  Company Number: BR-BIOGEN-2023BI01241866

PATIENT
  Age: 60 Year
  Sex: Male
  Weight: 57 kg

DRUGS (1)
  1. TYSABRI [Suspect]
     Active Substance: NATALIZUMAB
     Indication: Multiple sclerosis
     Dosage: 300 MG/ 15 ML
     Route: 050
     Dates: start: 20230926

REACTIONS (3)
  - Intestinal obstruction [Recovered/Resolved]
  - Anaemia [Unknown]
  - Gastrointestinal hypomotility [Unknown]

NARRATIVE: CASE EVENT DATE: 20231209
